FAERS Safety Report 10251359 (Version 1)
Quarter: 2014Q2

REPORT INFORMATION
  Report Type: Report from Study
  Country: JP (occurrence: JP)
  Receive Date: 20140622
  Receipt Date: 20140622
  Transmission Date: 20141212
  Serious: No
  Sender: FDA-Public Use
  Company Number: PHHY2013JP157116

PATIENT
  Age: 84 Year
  Sex: Male

DRUGS (8)
  1. TASIGNA [Suspect]
     Indication: CHRONIC MYELOID LEUKAEMIA
     Dosage: 300 MG, PER DAY
     Dates: start: 201208
  2. FUROSEMIDE [Concomitant]
     Dosage: UNK UKN, UNK
  3. AMIODARONE [Concomitant]
     Dosage: UNK UKN, UNK
  4. CARVEDILOL [Concomitant]
     Dosage: UNK UKN, UNK
  5. CILOSTAZOL [Concomitant]
     Dosage: UNK UKN, UNK
  6. WARFARIN [Concomitant]
     Dosage: UNK UKN, UNK
  7. MICOMBI COMBINATION [Concomitant]
     Dosage: UNK UKN, UNK
  8. AZOPT [Concomitant]
     Dosage: UNK UKN, UNK

REACTIONS (2)
  - Anaemia [Unknown]
  - Rash [Unknown]
